FAERS Safety Report 22118170 (Version 1)
Quarter: 2023Q1

REPORT INFORMATION
  Report Type: Spontaneous
  Country: US (occurrence: US)
  Receive Date: 20230321
  Receipt Date: 20230321
  Transmission Date: 20230417
  Serious: No
  Sender: FDA-Public Use
  Company Number: US-TEVA-2023-US-2867027

PATIENT
  Sex: Female

DRUGS (1)
  1. BUPRENORPHINE HYDROCHLORIDE [Suspect]
     Active Substance: BUPRENORPHINE HYDROCHLORIDE
     Indication: Product used for unknown indication
     Dosage: 20MCG/HR
     Route: 062

REACTIONS (6)
  - Influenza [Unknown]
  - Drug ineffective [Unknown]
  - Product physical issue [Unknown]
  - Product adhesion issue [Unknown]
  - Application site pain [Unknown]
  - Application site pruritus [Unknown]
